FAERS Safety Report 14483921 (Version 2)
Quarter: 2018Q2

REPORT INFORMATION
  Report Type: Spontaneous
  Country: US (occurrence: US)
  Receive Date: 20180205
  Receipt Date: 20180403
  Transmission Date: 20180711
  Serious: Yes (Other)
  Sender: FDA-Public Use
  Company Number: US-MALLINCKRODT-T201800347

PATIENT
  Sex: Female
  Weight: 68 kg

DRUGS (2)
  1. FENTANYL TRANSDERMAL SYSTEM [Suspect]
     Active Substance: FENTANYL
     Dosage: 100 MCG/HR EVERY 3 DAYS
     Route: 062
  2. FENTANYL TRANSDERMAL SYSTEM [Suspect]
     Active Substance: FENTANYL
     Indication: PAIN
     Dosage: 100 MCG/HR, EVERY 3 DAYS
     Route: 062

REACTIONS (7)
  - Withdrawal syndrome [Unknown]
  - Product quality issue [Unknown]
  - Vomiting [Unknown]
  - Multiple fractures [Unknown]
  - Drug ineffective [Unknown]
  - Nausea [Unknown]
  - Mental disorder [Unknown]
